FAERS Safety Report 4861676-8 (Version None)
Quarter: 2005Q4

REPORT INFORMATION
  Report Type: 
  Country: None (occurrence: None)
  Receive Date: 20051130
  Receipt Date: 20041021
  Transmission Date: 20060501
  Serious: Yes (Other)
  Sender: FDA-Public Use
  Company Number: 2004240749US

PATIENT
  Age: 72 Year
  Sex: Female
  Weight: 54.4 kg

DRUGS (12)
  1. ZYVOX [Suspect]
     Indication: PNEUMONIA
     Dosage: IV
     Route: 042
  2. ZYVOX [Suspect]
     Indication: PNEUMONIA
     Dosage: 600 MG, BID, ORAL
     Route: 048
     Dates: end: 20041020
  3. DEPAKOTE [Concomitant]
  4. ACIPHEX [Concomitant]
  5. TOPROL-XL [Concomitant]
  6. METOPROLOL [Concomitant]
  7. NORVASC [Concomitant]
  8. ZOCOR [Concomitant]
  9. CLONIDINE [Concomitant]
  10. LEVOTHYROXINE SODIUM [Concomitant]
  11. TRIAMTERENE AND HYDROCHLOROTHIAZIDE [Concomitant]
  12. FOSAMAX [Concomitant]

REACTIONS (3)
  - FATIGUE [None]
  - HYPERHIDROSIS [None]
  - PLATELET COUNT DECREASED [None]
